FAERS Safety Report 21114884 (Version 1)
Quarter: 2022Q3

REPORT INFORMATION
  Report Type: Spontaneous
  Country: ES (occurrence: ES)
  Receive Date: 20220721
  Receipt Date: 20220721
  Transmission Date: 20221026
  Serious: Yes (Life-Threatening)
  Sender: FDA-Public Use
  Company Number: None

PATIENT
  Age: 77 Year
  Sex: Male

DRUGS (16)
  1. ALDACTONE [Suspect]
     Active Substance: SPIRONOLACTONE
     Indication: Atrial fibrillation
     Dosage: 100 MG, 1X/DAY (BREAKFAST)
     Route: 048
     Dates: start: 20220611
  2. OLMESARTAN MEDOXOMIL [Suspect]
     Active Substance: OLMESARTAN MEDOXOMIL
     Indication: Essential hypertension
     Dosage: 40 MG, 1X/DAY (BREAKFAST)
     Route: 048
     Dates: start: 20220611
  3. TESTOSTERONE [Concomitant]
     Active Substance: TESTOSTERONE
     Indication: Organic erectile dysfunction
     Dosage: 250 MG, CYCLIC (EVERY 21 DAYS), STRENGTH 250 MG/2 ML, 1 AMPOULE OF 2 ML
     Route: 030
     Dates: start: 20141203
  4. METFORMIN HYDROCHLORIDE\SITAGLIPTIN PHOSPHATE [Concomitant]
     Active Substance: METFORMIN HYDROCHLORIDE\SITAGLIPTIN PHOSPHATE
     Indication: Product used for unknown indication
     Dosage: 1 TABLET, 2X/DAY (BREAKFAST AND DINNER)
     Route: 048
     Dates: start: 20100323
  5. PARACETAMOL CINFA [Concomitant]
     Indication: Spinal osteoarthritis
     Dosage: 1 G, DAILY (EVERY 24 HOURS)
     Route: 048
     Dates: start: 20211105
  6. DEXKETOPROFEN TROMETAMOL [Concomitant]
     Active Substance: DEXKETOPROFEN TROMETAMOL
     Indication: Spinal osteoarthritis
     Dosage: 25 MG, 2X/DAY(BREAKFAST AND DINNER)
     Route: 048
     Dates: start: 20220304
  7. VIRIREC [Concomitant]
     Indication: Organic erectile dysfunction
     Dosage: 300 UG, WEEKLY (EVERY 7 DAYS)
     Route: 061
     Dates: start: 20170919
  8. TOBREX [Concomitant]
     Active Substance: TOBRAMYCIN
     Indication: Conjunctivitis
     Dosage: 1 DROP, 3X/DAY(BREAKFAST/LUNCH/ DINNER)
     Route: 047
     Dates: start: 20220615, end: 20220621
  9. CLONIDINE HYDROCHLORIDE [Concomitant]
     Active Substance: CLONIDINE HYDROCHLORIDE
     Indication: Product used for unknown indication
     Dosage: 25 MG, 2X/DAY(BREAKFAST/ DINNER)
     Route: 048
     Dates: start: 20061227
  10. TORSEMIDE [Concomitant]
     Active Substance: TORSEMIDE
     Indication: Cardiac failure congestive
     Dosage: 10 MG, 1X/DAY(BREAKFAST)
     Route: 048
     Dates: start: 20220518
  11. ELIQUIS [Concomitant]
     Active Substance: APIXABAN
     Indication: Atrial fibrillation
     Dosage: 5 MG, 2X/DAY (EVERY 12 HOURS)
     Route: 048
     Dates: start: 20190802
  12. OMEPRAZOLE [Concomitant]
     Active Substance: OMEPRAZOLE
     Indication: Spinal osteoarthritis
     Dosage: 20 MG, 1X/DAY (BREAKFAST)
     Route: 048
     Dates: start: 20170118
  13. DOXAZOSIN MESYLATE [Concomitant]
     Active Substance: DOXAZOSIN MESYLATE
     Indication: Essential hypertension
     Dosage: 8 MG, 1X/DAY (DINNER)
     Route: 048
     Dates: start: 20120331
  14. ALOPURINOL CINFA [Concomitant]
     Indication: Atrial fibrillation
     Dosage: 100 MG, 1X/DAY (BREAKFAST)
     Route: 048
     Dates: start: 20170222
  15. SIMVASTATIN [Concomitant]
     Active Substance: SIMVASTATIN
     Indication: Atrial fibrillation
     Dosage: 20 MG, 1X/DAY(DINNER)
     Route: 048
     Dates: start: 20170221
  16. LYRICA [Concomitant]
     Active Substance: PREGABALIN
     Indication: Arthralgia
     Dosage: 150 MG, 1X/DAY (BREAKFAST)
     Route: 048
     Dates: start: 20210825

REACTIONS (3)
  - Acidosis [Recovering/Resolving]
  - Hyperkalaemia [Recovering/Resolving]
  - Anuria [Recovering/Resolving]

NARRATIVE: CASE EVENT DATE: 20220625
